FAERS Safety Report 10576101 (Version 1)
Quarter: 2014Q4

REPORT INFORMATION
  Report Type: Spontaneous
  Country: US (occurrence: None)
  Receive Date: 20141107
  Receipt Date: 20141107
  Transmission Date: 20150529
  Serious: Yes (Other)
  Sender: FDA-Public Use
  Company Number: PR 1995

PATIENT
  Age: 76 Year
  Sex: Male

DRUGS (3)
  1. ZIOPTAN [Suspect]
     Active Substance: TAFLUPROST
     Indication: EXFOLIATION GLAUCOMA
     Dates: start: 20101224, end: 20110711
  2. CARTEOLOL HYDROCHLORIDE. [Concomitant]
     Active Substance: CARTEOLOL HYDROCHLORIDE
  3. BRINZOLAMIDE [Concomitant]
     Active Substance: BRINZOLAMIDE

REACTIONS (3)
  - Retinal vein occlusion [None]
  - Visual acuity reduced [None]
  - Macular oedema [None]

NARRATIVE: CASE EVENT DATE: 20110628
